FAERS Safety Report 16558309 (Version 1)
Quarter: 2019Q3

REPORT INFORMATION
  Report Type: Spontaneous
  Country: US (occurrence: US)
  Receive Date: 20190529
  Receipt Date: 20190529
  Transmission Date: 20191004
  Serious: Yes (Life-Threatening, Hospitalization)
  Sender: FDA-Public Use
  Company Number: None

PATIENT
  Age: 74 Year
  Sex: Male

DRUGS (1)
  1. FENTANYL. [Suspect]
     Active Substance: FENTANYL
     Route: 042
     Dates: start: 20190314

REACTIONS (3)
  - Dyskinesia [None]
  - Hypertension [None]
  - Loss of consciousness [None]

NARRATIVE: CASE EVENT DATE: 20190314
